FAERS Safety Report 5677481-9 (Version None)
Quarter: 2008Q1

REPORT INFORMATION
  Report Type: 
  Country: None (occurrence: None)
  Receive Date: 20080324
  Receipt Date: 20080311
  Transmission Date: 20080703
  Serious: Yes (Hospitalization)
  Sender: FDA-Public Use
  Company Number: US-ELI_LILLY_AND_COMPANY-US200801000001

PATIENT
  Sex: Male
  Weight: 71.655 kg

DRUGS (5)
  1. FORTEO [Suspect]
     Indication: BONE DENSITY DECREASED
     Dosage: 20 UG, DAILY (1/D)
     Dates: start: 20070911
  2. FLOMAX [Concomitant]
  3. LIPITOR [Concomitant]
  4. VITAMINS WITH MINERALS [Concomitant]
  5. OSCAL D [Concomitant]

REACTIONS (6)
  - CELLULITIS [None]
  - DEHYDRATION [None]
  - FALL [None]
  - LABYRINTHITIS [None]
  - URINARY TRACT INFECTION [None]
  - VERTIGO POSITIONAL [None]
